FAERS Safety Report 6975178-6 (Version None)
Quarter: 2010Q3

REPORT INFORMATION
  Report Type: 
  Country: None (occurrence: None)
  Receive Date: 20100910
  Receipt Date: 20090206
  Transmission Date: 20110219
  Serious: No
  Sender: FDA-Public Use
  Company Number: US-WYE-H08126109

PATIENT
  Sex: Female
  Weight: 74.91 kg

DRUGS (6)
  1. PRISTIQ [Suspect]
     Indication: DEPRESSION
     Dosage: 50 MG EVERY 1 TOT
     Route: 048
     Dates: start: 20090205, end: 20090205
  2. PROTONIX [Concomitant]
  3. ATIVAN [Concomitant]
  4. LOVASTATIN [Concomitant]
  5. DIFLUNISAL [Concomitant]
  6. LAMICTAL [Concomitant]

REACTIONS (4)
  - HEADACHE [None]
  - INSOMNIA [None]
  - NAUSEA [None]
  - VOMITING [None]
